FAERS Safety Report 6043740-3 (Version None)
Quarter: 2009Q1

REPORT INFORMATION
  Report Type: 
  Country: None (occurrence: None)
  Receive Date: 20090120
  Receipt Date: 20090116
  Transmission Date: 20090719
  Serious: Yes (Other)
  Sender: FDA-Public Use
  Company Number: JP-JNJFOC-20090103831

PATIENT

DRUGS (10)
  1. ITRIZOLE [Suspect]
     Indication: DRUG USE FOR UNKNOWN INDICATION
     Route: 048
  2. BASEN [Interacting]
     Indication: DRUG USE FOR UNKNOWN INDICATION
     Route: 048
  3. INSULIN REGULAR [Interacting]
     Indication: DRUG USE FOR UNKNOWN INDICATION
     Route: 058
  4. MICARDIS [Interacting]
     Indication: DRUG USE FOR UNKNOWN INDICATION
     Route: 048
  5. CYANOCOBALAMIN [Interacting]
     Indication: DRUG USE FOR UNKNOWN INDICATION
     Route: 065
  6. TAKEPRON [Interacting]
     Indication: DRUG USE FOR UNKNOWN INDICATION
     Route: 065
  7. MYSLEE [Interacting]
     Indication: DRUG USE FOR UNKNOWN INDICATION
     Route: 048
  8. PANCREATIN [Interacting]
     Indication: DRUG USE FOR UNKNOWN INDICATION
     Route: 048
  9. BERIZYM [Interacting]
     Indication: DRUG USE FOR UNKNOWN INDICATION
     Route: 048
  10. SEVEN E_P [Interacting]
     Indication: DRUG USE FOR UNKNOWN INDICATION
     Route: 048

REACTIONS (2)
  - CONVULSION [None]
  - DRUG INTERACTION [None]
